FAERS Safety Report 8000449-4 (Version None)
Quarter: 2011Q4

REPORT INFORMATION
  Report Type: 
  Country: None (occurrence: None)
  Receive Date: 20111222
  Receipt Date: 20110712
  Transmission Date: 20120403
  Serious: No
  Sender: FDA-Public Use
  Company Number: US-BRISTOL-MYERS SQUIBB COMPANY-15898950

PATIENT
  Age: 71 Year
  Sex: Male
  Weight: 74 kg

DRUGS (5)
  1. TESTIM [Suspect]
     Indication: ANDROGEN REPLACEMENT THERAPY
     Route: 062
     Dates: start: 20110401
  2. HYDROCHLOROTHIAZIDE [Concomitant]
     Indication: HYPERTENSION
     Dosage: 12.5MG YEAR BEFORE 2011
  3. SIMVASTATIN [Concomitant]
     Indication: BLOOD CHOLESTEROL INCREASED
     Dates: end: 20110401
  4. PRAVASTATIN SODIUM [Suspect]
     Indication: BLOOD CHOLESTEROL INCREASED
     Route: 048
     Dates: start: 20110401
  5. LISINOPRIL [Concomitant]
     Indication: HYPERTENSION
     Dosage: 20MG YEAR BEFORE 2011 12.5MG YEAR BEFORE 2011

REACTIONS (1)
  - GENERALISED ERYTHEMA [None]
